FAERS Safety Report 6251923-2 (Version None)
Quarter: 2009Q2

REPORT INFORMATION
  Report Type: 
  Country: None (occurrence: None)
  Receive Date: 20090630
  Receipt Date: 20090618
  Transmission Date: 20091009
  Serious: Yes (Life-Threatening, Hospitalization)
  Sender: FDA-Public Use
  Company Number: SI-ELI_LILLY_AND_COMPANY-SI200906004559

PATIENT
  Sex: Male
  Weight: 25 kg

DRUGS (4)
  1. STRATTERA [Suspect]
     Indication: MENTAL RETARDATION
     Dosage: 10 MG, DAILY (1/D)
     Route: 048
     Dates: start: 20090305, end: 20090501
  2. CIRCADIN [Concomitant]
     Dosage: 4 D/F, UNK
  3. EPILEPTISIN [Concomitant]
  4. CERSON [Concomitant]

REACTIONS (2)
  - EPILEPSY [None]
  - OFF LABEL USE [None]
